FAERS Safety Report 24694895 (Version 1)
Quarter: 2024Q4

REPORT INFORMATION
  Report Type: Spontaneous
  Country: US (occurrence: None)
  Receive Date: 20241203
  Receipt Date: 20241203
  Transmission Date: 20250114
  Serious: Yes (Life-Threatening, Hospitalization)
  Sender: Public
  Company Number: None

PATIENT
  Age: 66 Year
  Sex: Male
  Weight: 126 kg

DRUGS (1)
  1. EMPAGLIFLOZIN [Suspect]
     Active Substance: EMPAGLIFLOZIN
     Indication: Cardiac failure congestive
     Dosage: OTHER FREQUENCY : AM;?
     Route: 048
     Dates: start: 20240521

REACTIONS (2)
  - Pyelonephritis [None]
  - Sepsis [None]

NARRATIVE: CASE EVENT DATE: 20240824
